FAERS Safety Report 7284101-9 (Version None)
Quarter: 2011Q1

REPORT INFORMATION
  Report Type: 
  Country: None (occurrence: None)
  Receive Date: 20110209
  Receipt Date: 20100311
  Transmission Date: 20110831
  Serious: Yes (Other)
  Sender: FDA-Public Use
  Company Number: US-PFIZER INC-2010032353

PATIENT
  Sex: Male
  Weight: 93.4 kg

DRUGS (1)
  1. HEPARIN SODIUM [Suspect]
     Dosage: UNK
     Dates: start: 20090101

REACTIONS (1)
  - DOCUMENTED HYPERSENSITIVITY TO ADMINISTERED DRUG [None]
